FAERS Safety Report 9397611 (Version 2)
Quarter: 2013Q3

REPORT INFORMATION
  Report Type: Report from Study
  Country: JP (occurrence: JP)
  Receive Date: 20130712
  Receipt Date: 20130807
  Transmission Date: 20140515
  Serious: No
  Sender: FDA-Public Use
  Company Number: JP-JNJFOC-20120912798

PATIENT
  Age: 69 Year
  Sex: Male
  Weight: 78 kg

DRUGS (27)
  1. USTEKINUMAB [Suspect]
     Indication: PSORIASIS
     Route: 058
     Dates: start: 20110719, end: 20120719
  2. USTEKINUMAB [Suspect]
     Indication: PSORIASIS
     Route: 058
     Dates: start: 20110816, end: 20110816
  3. USTEKINUMAB [Suspect]
     Indication: PSORIASIS
     Route: 058
     Dates: start: 20120131, end: 20120131
  4. USTEKINUMAB [Suspect]
     Indication: PSORIASIS
     Route: 058
     Dates: start: 20120424, end: 20120424
  5. USTEKINUMAB [Suspect]
     Indication: PSORIASIS
     Route: 058
  6. USTEKINUMAB [Suspect]
     Indication: PSORIASIS
     Route: 058
     Dates: start: 20111108, end: 20111108
  7. USTEKINUMAB [Suspect]
     Indication: PSORIASIS
     Route: 058
     Dates: start: 20120717, end: 20120717
  8. RHEUMATREX [Suspect]
     Indication: PSORIASIS
     Route: 048
     Dates: start: 20120306, end: 20120501
  9. RHEUMATREX [Suspect]
     Indication: PSORIASIS
     Route: 048
     Dates: start: 20120614, end: 20120717
  10. TAKEPRON [Concomitant]
     Indication: PROPHYLAXIS
     Route: 048
     Dates: start: 20120614, end: 20120717
  11. TAKEPRON [Concomitant]
     Indication: PROPHYLAXIS
     Route: 048
     Dates: start: 20120306, end: 20120501
  12. ATELEC [Concomitant]
     Indication: PRODUCT USED FOR UNKNOWN INDICATION
     Route: 048
  13. ISCOTIN [Concomitant]
     Indication: PROPHYLAXIS
     Route: 048
     Dates: start: 20110721, end: 20120424
  14. PYDOXAL [Concomitant]
     Indication: PROPHYLAXIS
     Route: 048
     Dates: start: 20110721, end: 20120424
  15. FOLIAMIN [Concomitant]
     Indication: PROPHYLAXIS
     Route: 048
     Dates: start: 20120614, end: 20120717
  16. FOLIAMIN [Concomitant]
     Indication: PROPHYLAXIS
     Route: 048
     Dates: start: 20120306, end: 20120501
  17. LOXONIN [Concomitant]
     Indication: RADICULOPATHY
     Route: 048
     Dates: start: 20111125
  18. MUCOSTA [Concomitant]
     Indication: PROPHYLAXIS
     Route: 048
     Dates: start: 20111125
  19. METHYCOBAL [Concomitant]
     Indication: RADICULOPATHY
     Route: 048
     Dates: start: 20111125
  20. NEUROTROPIN [Concomitant]
     Indication: RADICULOPATHY
     Route: 048
     Dates: start: 20111112
  21. PARIET [Concomitant]
     Indication: PROPHYLAXIS
     Route: 048
     Dates: start: 20120717
  22. AZULFIDINE-EN [Concomitant]
     Indication: PSORIASIS
     Route: 048
     Dates: start: 20120828, end: 20120911
  23. ZITHROMAC [Concomitant]
     Indication: BRONCHITIS
     Route: 048
     Dates: start: 20120412, end: 20120415
  24. MUCODYNE [Concomitant]
     Indication: PROPHYLAXIS
     Route: 048
     Dates: start: 20120412, end: 20120614
  25. MUCODYNE [Concomitant]
     Indication: PROPHYLAXIS
     Route: 048
     Dates: start: 20120717, end: 20120814
  26. MUCODYNE [Concomitant]
     Indication: BRONCHITIS
     Route: 048
     Dates: start: 20120717, end: 20120814
  27. MUCODYNE [Concomitant]
     Indication: BRONCHITIS
     Route: 048
     Dates: start: 20120412, end: 20120614

REACTIONS (2)
  - Bronchitis [Recovered/Resolved]
  - Hepatic enzyme increased [Not Recovered/Not Resolved]
